FAERS Safety Report 19969499 (Version 1)
Quarter: 2021Q4

REPORT INFORMATION
  Report Type: Spontaneous
  Country: FI (occurrence: FI)
  Receive Date: 20211019
  Receipt Date: 20211019
  Transmission Date: 20220304
  Serious: Yes (Death)
  Sender: FDA-Public Use
  Company Number: FI-ROCHE-2932689

PATIENT
  Age: 63 Year
  Sex: Male
  Weight: 102 kg

DRUGS (3)
  1. ATEZOLIZUMAB [Suspect]
     Active Substance: ATEZOLIZUMAB
     Indication: Hepatocellular carcinoma
     Route: 065
  2. BEVACIZUMAB [Suspect]
     Active Substance: BEVACIZUMAB
     Indication: Hepatocellular carcinoma
     Route: 065
  3. LENVATINIB [Concomitant]
     Active Substance: LENVATINIB

REACTIONS (7)
  - Death [Fatal]
  - Vasculitic rash [Unknown]
  - Swelling [Unknown]
  - Abdominal pain [Unknown]
  - Ureterolithiasis [Unknown]
  - Off label use [Unknown]
  - Off label use [Unknown]
